FAERS Safety Report 6595637-8 (Version None)
Quarter: 2010Q1

REPORT INFORMATION
  Report Type: 
  Country: None (occurrence: None)
  Receive Date: 20100223
  Receipt Date: 20100105
  Transmission Date: 20100710
  Serious: Yes (Death)
  Sender: FDA-Public Use
  Company Number: US-TYCO HEALTHCARE/MALLINCKRODT-T201000373

PATIENT
  Age: 50 Year
  Sex: Male

DRUGS (4)
  1. MORPHINE [Suspect]
  2. OXYCODONE [Suspect]
  3. DIAZEPAM [Suspect]
  4. PHENTERMINE [Suspect]

REACTIONS (2)
  - CARDIO-RESPIRATORY ARREST [None]
  - DRUG ABUSE [None]
